FAERS Safety Report 4551193-7 (Version None)
Quarter: 2005Q1

REPORT INFORMATION
  Report Type: 
  Country: None (occurrence: None)
  Receive Date: 20050106
  Receipt Date: 20041222
  Transmission Date: 20050727
  Serious: Yes (Hospitalization)
  Sender: FDA-Public Use
  Company Number: 2004-FF-00757FF

PATIENT
  Age: 81 Year
  Sex: Male

DRUGS (8)
  1. PERSANTINE [Suspect]
     Dosage: 1 UNIT DOSE THREE TIMES DAILY PO
     Route: 048
     Dates: end: 20040206
  2. ASPEGIC 325 [Concomitant]
  3. COUMADIN [Concomitant]
  4. SURGAM (TIAPROFENIC ACID) [Concomitant]
  5. PIPRAM (PIPEMIDIC ACID) [Concomitant]
  6. CORVASAL (MOLSIDOMINE) [Concomitant]
  7. COZAAR [Concomitant]
  8. ATORVASTATIN CALCIUM [Concomitant]

REACTIONS (5)
  - BRAIN OEDEMA [None]
  - CEREBRAL HAEMORRHAGE [None]
  - FACIAL PALSY [None]
  - GRAND MAL CONVULSION [None]
  - HEMIPARESIS [None]
